FAERS Safety Report 9080255 (Version 1)
Quarter: 2013Q1

REPORT INFORMATION
  Report Type: Spontaneous
  Country: GB (occurrence: GB)
  Receive Date: 20130218
  Receipt Date: 20130218
  Transmission Date: 20140127
  Serious: Yes (Other)
  Sender: FDA-Public Use
  Company Number: PHHY2013GB014116

PATIENT
  Age: 20 Year
  Sex: Male
  Weight: 68 kg

DRUGS (3)
  1. TRAZODONE [Suspect]
     Indication: DEPRESSION
     Dosage: 50 MG, UNK
     Route: 048
     Dates: start: 20111227, end: 20120313
  2. CITALOPRAM [Suspect]
     Indication: DEPRESSION
     Dosage: UNK UKN, UNK
     Route: 048
     Dates: start: 20111105, end: 20120802
  3. VENLAFAXINE [Concomitant]

REACTIONS (6)
  - Logorrhoea [Unknown]
  - Impulsive behaviour [Unknown]
  - Psychotic disorder [Recovered/Resolved with Sequelae]
  - Insomnia [Unknown]
  - Hallucination [Unknown]
  - Drug interaction [Unknown]
